FAERS Safety Report 6194088-8 (Version None)
Quarter: 2009Q2

REPORT INFORMATION
  Report Type: 
  Country: None (occurrence: None)
  Receive Date: 20090518
  Receipt Date: 20090506
  Transmission Date: 20091009
  Serious: Yes (Other)
  Sender: FDA-Public Use
  Company Number: BR-JNJCH-2009013030

PATIENT
  Sex: Female
  Weight: 68 kg

DRUGS (2)
  1. COOL MINT LISTERINE [Suspect]
     Indication: DENTAL DISORDER PROPHYLAXIS
     Dosage: TEXT:REGULARLY
     Route: 048
  2. AMOXICILLIN [Concomitant]
     Indication: INFLAMMATION
     Dosage: TEXT:UNSPECIFIED
     Route: 065

REACTIONS (4)
  - HYPOKINESIA [None]
  - OEDEMA PERIPHERAL [None]
  - ORAL SURGERY [None]
  - SKIN LACERATION [None]
